FAERS Safety Report 12061575 (Version 1)
Quarter: 2016Q1

REPORT INFORMATION
  Report Type: Spontaneous
  Country: US (occurrence: US)
  Receive Date: 20160210
  Receipt Date: 20160210
  Transmission Date: 20160526
  Serious: No
  Sender: FDA-Public Use
  Company Number: US-ALLERGAN-1418649US

PATIENT
  Age: 37 Year
  Sex: Female

DRUGS (2)
  1. MYOBLOC [Concomitant]
     Active Substance: RIMABOTULINUMTOXINB
     Indication: MIGRAINE
  2. BOTOX [Suspect]
     Active Substance: ONABOTULINUMTOXINA
     Indication: MIGRAINE
     Dosage: 200 UNITS, SINGLE
     Route: 030
     Dates: start: 20140819, end: 20140819

REACTIONS (4)
  - Pain [Recovered/Resolved]
  - Product preparation error [Unknown]
  - Off label use [Unknown]
  - Neck pain [Recovered/Resolved]

NARRATIVE: CASE EVENT DATE: 20140820
